FAERS Safety Report 14478054 (Version 1)
Quarter: 2018Q1

REPORT INFORMATION
  Report Type: Spontaneous
  Country: US (occurrence: US)
  Receive Date: 20180201
  Receipt Date: 20180201
  Transmission Date: 20180509
  Serious: No
  Sender: FDA-Public Use
  Company Number: US-AMGEN-USASP2018013079

PATIENT
  Age: 88 Year
  Sex: Female

DRUGS (3)
  1. TENORMIN [Concomitant]
     Active Substance: ATENOLOL
     Dosage: UNK
  2. ENBREL [Suspect]
     Active Substance: ETANERCEPT
     Indication: PSORIASIS
     Dosage: UNK
     Route: 065
     Dates: start: 2000
  3. NORVASC [Concomitant]
     Active Substance: AMLODIPINE BESYLATE
     Dosage: UNK

REACTIONS (4)
  - Drug ineffective [Unknown]
  - Swelling [Not Recovered/Not Resolved]
  - Dry skin [Unknown]
  - Arthralgia [Unknown]
